FAERS Safety Report 5735467-X (Version None)
Quarter: 2008Q2

REPORT INFORMATION
  Report Type: 
  Country: None (occurrence: None)
  Receive Date: 20080512
  Receipt Date: 20080505
  Transmission Date: 20081010
  Serious: Yes (Death)
  Sender: FDA-Public Use
  Company Number: US-BAXTER-2008BH004642

PATIENT
  Age: 75 Year
  Sex: Male
  Weight: 68 kg

DRUGS (12)
  1. HEPARIN SODIUM [Suspect]
     Indication: PROPHYLAXIS
     Dosage: DOSE UNIT:UNKNOWN
     Route: 065
  2. ASPIRIN [Concomitant]
     Indication: DRUG USE FOR UNKNOWN INDICATION
     Route: 065
  3. TRICOR [Concomitant]
     Indication: DRUG USE FOR UNKNOWN INDICATION
     Route: 065
  4. FOSRENOL [Concomitant]
     Indication: DRUG USE FOR UNKNOWN INDICATION
     Route: 065
  5. DIATXZN [Concomitant]
     Indication: DRUG USE FOR UNKNOWN INDICATION
     Route: 065
  6. DIATXZN [Concomitant]
     Route: 065
  7. SUCRALFATE [Concomitant]
     Indication: DRUG USE FOR UNKNOWN INDICATION
     Route: 065
  8. NEXIUM [Concomitant]
     Indication: DRUG USE FOR UNKNOWN INDICATION
     Route: 065
  9. CALCITRIOL [Concomitant]
     Indication: DRUG USE FOR UNKNOWN INDICATION
     Route: 065
  10. PROTONIX [Concomitant]
     Indication: DRUG USE FOR UNKNOWN INDICATION
     Route: 065
  11. LEVAMIR [Concomitant]
     Indication: DRUG USE FOR UNKNOWN INDICATION
     Route: 065
  12. NOVOLOG [Concomitant]
     Indication: DRUG USE FOR UNKNOWN INDICATION
     Route: 065

REACTIONS (8)
  - ASTHENIA [None]
  - DIZZINESS [None]
  - HEART RATE INCREASED [None]
  - HEPATIC HAEMORRHAGE [None]
  - HYPOTENSION [None]
  - NAUSEA [None]
  - RENAL FAILURE [None]
  - VOMITING [None]
